FAERS Safety Report 22620833 (Version 1)
Quarter: 2023Q2

REPORT INFORMATION
  Report Type: Spontaneous
  Country: US (occurrence: US)
  Receive Date: 20230620
  Receipt Date: 20230620
  Transmission Date: 20230721
  Serious: No
  Sender: FDA-Public Use
  Company Number: US-ALKERMES INC.-ALK-2023-002333

PATIENT
  Age: 51 Year
  Sex: Female

DRUGS (1)
  1. LYBALVI [Suspect]
     Active Substance: OLANZAPINE\SAMIDORPHAN L-MALATE
     Indication: Product used for unknown indication
     Dosage: 2 TABLETS OF 20/10 MILLIGRAM, QD
     Route: 048

REACTIONS (3)
  - Intentional product misuse [Unknown]
  - Hangover [Unknown]
  - Sedation [Unknown]
